FAERS Safety Report 7073420-7 (Version None)
Quarter: 2010Q4

REPORT INFORMATION
  Report Type: 
  Country: None (occurrence: None)
  Receive Date: 20101029
  Receipt Date: 20100615
  Transmission Date: 20110411
  Serious: No
  Sender: FDA-Public Use
  Company Number: A0865288A

PATIENT
  Age: 82 Year
  Sex: Female

DRUGS (3)
  1. ADVAIR DISKUS 100/50 [Suspect]
     Indication: SEASONAL ALLERGY
     Dosage: 1BLS TWICE PER DAY
     Route: 055
     Dates: start: 20100601, end: 20100601
  2. SINGULAIR [Suspect]
     Route: 065
  3. NO CONCURRENT MEDICATION [Concomitant]

REACTIONS (10)
  - ADVERSE DRUG REACTION [None]
  - BREATH SOUNDS [None]
  - COUGH [None]
  - DRUG INEFFECTIVE [None]
  - DRY MOUTH [None]
  - EYE DISORDER [None]
  - NERVOUSNESS [None]
  - RESPIRATORY DISORDER [None]
  - SPUTUM INCREASED [None]
  - THROAT IRRITATION [None]
